FAERS Safety Report 5590271-0 (Version None)
Quarter: 2008Q1

REPORT INFORMATION
  Report Type: 
  Country: None (occurrence: None)
  Receive Date: 20080109
  Receipt Date: 20080104
  Transmission Date: 20080703
  Serious: Yes (Death)
  Sender: FDA-Public Use
  Company Number: CERZ-1000003

PATIENT
  Age: 6 Year
  Sex: Female
  Weight: 13.8 kg

DRUGS (1)
  1. CEREZYME [Suspect]
     Indication: GAUCHER'S DISEASE
     Dosage: 1400 U, QOW, INTRAVENOUS
     Route: 042
     Dates: start: 20020910

REACTIONS (2)
  - ASPIRATION [None]
  - GRAND MAL CONVULSION [None]
